FAERS Safety Report 20745913 (Version 1)
Quarter: 2022Q2

REPORT INFORMATION
  Report Type: Spontaneous
  Country: NL (occurrence: None)
  Receive Date: 20220425
  Receipt Date: 20220425
  Transmission Date: 20220721
  Serious: Yes (Death, Hospitalization)
  Sender: FDA-Public Use
  Company Number: NL-VistaPharm, Inc.-VER202204-000334

PATIENT
  Age: 77 Year
  Sex: Male

DRUGS (6)
  1. ACETAMINOPHEN\HYDROCODONE [Suspect]
     Active Substance: ACETAMINOPHEN\HYDROCODONE
     Indication: Infection
     Dosage: UNKNOWN (HIGH DOSE)
     Route: 042
  2. ACETAMINOPHEN\HYDROCODONE [Suspect]
     Active Substance: ACETAMINOPHEN\HYDROCODONE
     Indication: Joint prosthesis user
  3. FLUCLOXACILLIN [Suspect]
     Active Substance: FLUCLOXACILLIN
     Indication: Infection
     Dosage: UNKNOWN
     Route: 042
  4. FLUCLOXACILLIN [Suspect]
     Active Substance: FLUCLOXACILLIN
     Indication: Joint prosthesis user
  5. RIFAMPIN [Suspect]
     Active Substance: RIFAMPIN
     Indication: Infection
     Dosage: UNKNOWN
     Route: 042
  6. RIFAMPIN [Suspect]
     Active Substance: RIFAMPIN
     Indication: Joint prosthesis user

REACTIONS (1)
  - Pyroglutamic acidosis [Fatal]
